FAERS Safety Report 21283414 (Version 1)
Quarter: 2022Q3

REPORT INFORMATION
  Report Type: Spontaneous
  Country: US (occurrence: None)
  Receive Date: 20220831
  Receipt Date: 20220831
  Transmission Date: 20221027
  Serious: Yes (Hospitalization)
  Sender: FDA-Public Use
  Company Number: None

PATIENT
  Sex: Male

DRUGS (12)
  1. LENALIDOMIDE [Suspect]
     Active Substance: LENALIDOMIDE
     Indication: Diffuse large B-cell lymphoma
     Dosage: FREQUENCY : DAILY;?
     Route: 048
     Dates: start: 20220608
  2. FINASTERIDE [Concomitant]
     Active Substance: FINASTERIDE
  3. FLOMAX CAP [Concomitant]
  4. GABAPENTIN [Concomitant]
     Active Substance: GABAPENTIN
  5. JARDIANCE TAB [Concomitant]
  6. LANTUS INJ [Concomitant]
  7. LISINOPRIL [Concomitant]
     Active Substance: LISINOPRIL
  8. MAGNESIUM TAB [Concomitant]
  9. METFORMIN TAB [Concomitant]
  10. OMEPRAZOLE SODIUM [Concomitant]
     Active Substance: OMEPRAZOLE SODIUM
  11. REVLIMID CAP [Concomitant]
  12. VALACYLOVIR TAB [Concomitant]

REACTIONS (3)
  - Surgery [None]
  - Product dose omission in error [None]
  - Memory impairment [None]
